FAERS Safety Report 6332375-0 (Version None)
Quarter: 2009Q3

REPORT INFORMATION
  Report Type: 
  Country: None (occurrence: None)
  Receive Date: 20090828
  Receipt Date: 20090826
  Transmission Date: 20100115
  Serious: Yes (Other)
  Sender: FDA-Public Use
  Company Number: US-TEVA-205411USA

PATIENT
  Sex: Female

DRUGS (2)
  1. CLARAVIS [Suspect]
     Route: 048
     Dates: start: 20090630, end: 20090707
  2. NUVARING [Concomitant]
     Indication: CONTRACEPTION

REACTIONS (2)
  - ANXIETY [None]
  - UNINTENDED PREGNANCY [None]
